FAERS Safety Report 8262941 (Version 10)
Quarter: 2013Q4

REPORT INFORMATION
  Report Type: Spontaneous
  Country: US (occurrence: US)
  Receive Date: 20111125
  Receipt Date: 20131010
  Transmission Date: 20140711
  Serious: Yes (Hospitalization, Other)
  Sender: FDA-Public Use
  Company Number: US-ROCHE-1015927

PATIENT
  Age: 29 Year
  Sex: Male
  Weight: 70.37 kg

DRUGS (1)
  1. ACCUTANE [Suspect]
     Indication: ACNE
     Route: 065
     Dates: start: 19941130, end: 19950422

REACTIONS (6)
  - Irritable bowel syndrome [Unknown]
  - Diverticulitis [Unknown]
  - Depression [Not Recovered/Not Resolved]
  - Injury [Unknown]
  - Inflammatory bowel disease [Unknown]
  - Polyp [Unknown]
